FAERS Safety Report 8613873-3 (Version None)
Quarter: 2012Q3

REPORT INFORMATION
  Report Type: 
  Country: None (occurrence: None)
  Receive Date: 20120823
  Receipt Date: 20120810
  Transmission Date: 20120928
  Serious: Yes (Hospitalization, Disabling, Other)
  Sender: FDA-Public Use
  Company Number: US-009507513-1205USA05075

PATIENT

DRUGS (7)
  1. FOSAMAX [Suspect]
     Dosage: UNK
  2. FOSAMAX [Suspect]
     Indication: OSTEOPOROSIS
     Dosage: 10 MG, UNK
     Route: 048
     Dates: start: 20001220
  3. FOSAMAX [Suspect]
     Indication: OSTEOPENIA
     Dosage: 70 MG, QW
     Route: 048
     Dates: start: 20050121, end: 20080104
  4. CALCIUM (UNSPECIFIED) [Concomitant]
     Dosage: 1200 MG, QD
     Route: 048
     Dates: start: 20001220
  5. ALENDRONATE SODIUM [Suspect]
     Indication: OSTEOPENIA
  6. ALENDRONATE SODIUM [Suspect]
     Indication: OSTEOPOROSIS
     Dosage: 70 MG, QW
     Route: 048
     Dates: start: 20080618, end: 20100528
  7. VITAMIN D [Suspect]
     Dosage: UNK
     Route: 048
     Dates: start: 20001220

REACTIONS (25)
  - GLOMERULONEPHRITIS [None]
  - HYPERTENSION [None]
  - TACHYCARDIA [None]
  - BIOPSY BREAST NORMAL [None]
  - INFECTION [None]
  - DEHYDRATION [None]
  - MITRAL VALVE INCOMPETENCE [None]
  - VIRAL INFECTION [None]
  - AORTIC STENOSIS [None]
  - TOOTH DISORDER [None]
  - LOW TURNOVER OSTEOPATHY [None]
  - CARDIAC FAILURE CONGESTIVE [None]
  - SYNCOPE [None]
  - HYPERCHOLESTEROLAEMIA [None]
  - OSTEOARTHRITIS [None]
  - CORONARY ARTERY DISEASE [None]
  - THROMBOCYTOPENIA [None]
  - EXCORIATION [None]
  - LIVER FUNCTION TEST ABNORMAL [None]
  - FEMUR FRACTURE [None]
  - FALL [None]
  - ROAD TRAFFIC ACCIDENT [None]
  - CAROTID ARTERY DISEASE [None]
  - PAIN IN EXTREMITY [None]
  - CHRONIC OBSTRUCTIVE PULMONARY DISEASE [None]
